FAERS Safety Report 7655208-9 (Version None)
Quarter: 2011Q3

REPORT INFORMATION
  Report Type: 
  Country: None (occurrence: None)
  Receive Date: 20110804
  Receipt Date: 20110801
  Transmission Date: 20111222
  Serious: Yes (Life-Threatening, Hospitalization, Disabling, Other)
  Sender: FDA-Public Use
  Company Number: US-BAYER-2011-067668

PATIENT
  Age: 42 Year
  Sex: Female

DRUGS (4)
  1. AMITRIPTYLINE HCL [Concomitant]
  2. ALLEGRA [Concomitant]
  3. NEXIUM [Concomitant]
  4. AVELOX [Suspect]
     Indication: SINUSITIS
     Dosage: 400 MG, UNK
     Route: 048
     Dates: start: 20070621, end: 20070621

REACTIONS (4)
  - ARRHYTHMIA [None]
  - ENCEPHALOPATHY [None]
  - CIRCULATORY COLLAPSE [None]
  - CARDIAC ARREST [None]
